FAERS Safety Report 5594141-3 (Version None)
Quarter: 2008Q1

REPORT INFORMATION
  Report Type: 
  Country: None (occurrence: None)
  Receive Date: 20080116
  Receipt Date: 20080108
  Transmission Date: 20080703
  Serious: Yes (Other)
  Sender: FDA-Public Use
  Company Number: CL-PFIZER INC-2008003415

PATIENT
  Age: 32 Year
  Sex: Female

DRUGS (1)
  1. VARENICLINE TABLETS [Suspect]

REACTIONS (1)
  - THYROIDITIS ACUTE [None]
